FAERS Safety Report 13939472 (Version 1)
Quarter: 2017Q3

REPORT INFORMATION
  Report Type: Spontaneous
  Country: US (occurrence: US)
  Receive Date: 20170906
  Receipt Date: 20170906
  Transmission Date: 20171127
  Serious: No
  Sender: FDA-Public Use
  Company Number: US-PFIZER INC-2017378720

PATIENT
  Age: 66 Year
  Sex: Female
  Weight: 82.1 kg

DRUGS (1)
  1. LYRICA [Suspect]
     Active Substance: PREGABALIN
     Indication: POST HERPETIC NEURALGIA
     Dosage: 50 MG, UNK

REACTIONS (3)
  - Nausea [Unknown]
  - Balance disorder [Unknown]
  - Dizziness [Unknown]
